FAERS Safety Report 4360059-7 (Version None)
Quarter: 2004Q2

REPORT INFORMATION
  Report Type: 
  Country: None (occurrence: None)
  Receive Date: 20040513
  Receipt Date: 20040513
  Transmission Date: 20050107
  Serious: Yes (Congenital Anomaly)
  Sender: FDA-Public Use
  Company Number: DSA_24351_2004

PATIENT
  Sex: Male

DRUGS (2)
  1. ENALAPRIL MALEATE [Suspect]
     Indication: HYPERTENSION
  2. LOSARTAN POTASSIUM [Suspect]
     Indication: HYPERTENSION

REACTIONS (3)
  - ANGIONEUROTIC OEDEMA [None]
  - HAEMODIALYSIS [None]
  - RENAL DISORDER [None]
